FAERS Safety Report 6546547-3 (Version None)
Quarter: 2010Q1

REPORT INFORMATION
  Report Type: 
  Country: None (occurrence: None)
  Receive Date: 20100120
  Receipt Date: 20091013
  Transmission Date: 20100710
  Serious: No
  Sender: FDA-Public Use
  Company Number: 2009-00671

PATIENT
  Age: 46 Year
  Sex: Male
  Weight: 134.2647 kg

DRUGS (2)
  1. COLD REMEDY ORAL MIST [Suspect]
     Dosage: 2 DOSES - 2 DOSES; LAST WEEK-AFTER 2 DOSES
  2. CARDIZEM [Concomitant]

REACTIONS (2)
  - AGEUSIA [None]
  - ANOSMIA [None]
